FAERS Safety Report 19531349 (Version 1)
Quarter: 2021Q3

REPORT INFORMATION
  Report Type: Report from Study
  Country: DE (occurrence: DE)
  Receive Date: 20210713
  Receipt Date: 20210713
  Transmission Date: 20211014
  Serious: Yes (Death, Other)
  Sender: FDA-Public Use
  Company Number: DE-GLAXOSMITHKLINE-DE2021GSK150743

PATIENT
  Age: 71 Year
  Sex: Male
  Weight: 94 kg

DRUGS (2)
  1. FORMOTEROL AL [Concomitant]
     Indication: CHRONIC OBSTRUCTIVE PULMONARY DISEASE
     Dosage: 12 UG, BID
     Route: 055
     Dates: start: 20210528, end: 20210616
  2. FLUTICASONE FUR+UMECLIDINIUM+VILANTEROL [Suspect]
     Active Substance: FLUTICASONE FUROATE\UMECLIDINIUM BROMIDE\VILANTEROL TRIFENATATE
     Indication: CHRONIC OBSTRUCTIVE PULMONARY DISEASE
     Dosage: UNK
     Route: 055
     Dates: start: 20210226, end: 20210616

REACTIONS (1)
  - Death [Fatal]

NARRATIVE: CASE EVENT DATE: 20210617
